FAERS Safety Report 9904849 (Version 1)
Quarter: 2014Q1

REPORT INFORMATION
  Report Type: Report from Study
  Country: JP (occurrence: JP)
  Receive Date: 20140218
  Receipt Date: 20140218
  Transmission Date: 20141002
  Serious: Yes (Other)
  Sender: FDA-Public Use
  Company Number: JP-ASTRAZENECA-2014SE10861

PATIENT
  Age: 63 Year
  Sex: Female

DRUGS (9)
  1. CRESTOR [Suspect]
     Indication: HYPERCHOLESTEROLAEMIA
     Route: 048
     Dates: start: 20081125, end: 20120215
  2. CRESTOR [Suspect]
     Indication: HYPERCHOLESTEROLAEMIA
     Route: 048
     Dates: start: 20120216
  3. EQUA [Concomitant]
     Indication: DIABETES MELLITUS
     Route: 065
     Dates: start: 20110623, end: 20120911
  4. TRAZENTA [Concomitant]
     Indication: DIABETES MELLITUS
     Route: 065
     Dates: start: 20120912
  5. AMLODIN [Concomitant]
     Indication: HYPERTENSION
     Route: 065
     Dates: start: 20100305, end: 20121009
  6. PREMINENT [Concomitant]
     Indication: HYPERTENSION
     Route: 048
     Dates: start: 20110509
  7. CALBLOCK [Concomitant]
     Indication: HYPERTENSION
     Route: 065
     Dates: start: 20121010
  8. ISOCLINE [Concomitant]
     Route: 048
     Dates: start: 20091110
  9. URITOS [Concomitant]
     Route: 065
     Dates: start: 20110623

REACTIONS (1)
  - Blood creatinine increased [Unknown]
